FAERS Safety Report 14494719 (Version 1)
Quarter: 2018Q1

REPORT INFORMATION
  Report Type: Spontaneous
  Country: US (occurrence: US)
  Receive Date: 20180201
  Receipt Date: 20180201
  Transmission Date: 20180509
  Serious: Yes (Disabling)
  Sender: FDA-Public Use
  Company Number: None

PATIENT
  Sex: Female
  Weight: 58.06 kg

DRUGS (1)
  1. KYBELLA [Suspect]
     Active Substance: DEOXYCHOLIC ACID

REACTIONS (4)
  - Hypoaesthesia [None]
  - Dysphagia [None]
  - Hypoaesthesia oral [None]
  - Paralysis [None]

NARRATIVE: CASE EVENT DATE: 20160316
